FAERS Safety Report 9751566 (Version 1)
Quarter: 2013Q4

REPORT INFORMATION
  Report Type: Spontaneous
  Country: GB (occurrence: GB)
  Receive Date: 20131212
  Receipt Date: 20131212
  Transmission Date: 20140711
  Serious: Yes (Other)
  Sender: FDA-Public Use
  Company Number: PHHY2013GB142791

PATIENT
  Age: 29 Year
  Sex: Female

DRUGS (1)
  1. VENLAFAXINE [Suspect]
     Indication: ANXIETY
     Dosage: 37.5 MG, UNK
     Route: 048
     Dates: start: 20131115, end: 20131115

REACTIONS (1)
  - Syncope [Recovered/Resolved]
